FAERS Safety Report 7530040-5 (Version None)
Quarter: 2011Q2

REPORT INFORMATION
  Report Type: 
  Country: None (occurrence: None)
  Receive Date: 20110607
  Receipt Date: 20110524
  Transmission Date: 20111010
  Serious: Yes (Hospitalization, Other)
  Sender: FDA-Public Use
  Company Number: PHHY2011US39360

PATIENT
  Sex: Female
  Weight: 58 kg

DRUGS (20)
  1. MULTI-VITAMINS [Concomitant]
  2. BIOTIN [Concomitant]
  3. OS-CAL [Concomitant]
  4. VITAMIN E [Concomitant]
  5. SINGULAIR [Concomitant]
  6. FOLIC ACID [Concomitant]
  7. ASPIRIN [Concomitant]
  8. ASCORBIC ACID [Concomitant]
  9. CALCIUM-D [Concomitant]
  10. DIGOXIN [Concomitant]
  11. CLARITIN [Concomitant]
  12. PANTOPRAZOLE [Concomitant]
  13. LIPITOR [Concomitant]
  14. RECLAST [Suspect]
     Indication: OSTEOPOROSIS
     Dosage: 5 MG, ONCE YEARLY
     Route: 042
     Dates: start: 20110414
  15. ADVAIR DISKUS 100/50 [Concomitant]
  16. SPIRIVA [Concomitant]
  17. ALBUTEROL SULFATE AUTOHALER [Concomitant]
  18. METHOTREXATE [Concomitant]
  19. LISINOPRIL [Concomitant]
  20. DILTIAZEM [Concomitant]

REACTIONS (18)
  - ACUTE PHASE REACTION [None]
  - BLOOD PRESSURE DECREASED [None]
  - BLOOD UREA INCREASED [None]
  - URINARY TRACT INFECTION [None]
  - URINE OUTPUT DECREASED [None]
  - RENAL FAILURE ACUTE [None]
  - MYALGIA [None]
  - HYPERTENSION [None]
  - ABNORMAL FAECES [None]
  - PYREXIA [None]
  - ANAEMIA [None]
  - RHEUMATOID ARTHRITIS [None]
  - WHITE BLOOD CELL COUNT INCREASED [None]
  - APPETITE DISORDER [None]
  - LEUKOCYTOSIS [None]
  - DIARRHOEA [None]
  - HYPOKALAEMIA [None]
  - BLOOD CREATININE INCREASED [None]
